FAERS Safety Report 6110723-4 (Version None)
Quarter: 2009Q1

REPORT INFORMATION
  Report Type: 
  Country: None (occurrence: None)
  Receive Date: 20090309
  Receipt Date: 20090227
  Transmission Date: 20090719
  Serious: Yes (Hospitalization)
  Sender: FDA-Public Use
  Company Number: CHPA2009US00975

PATIENT
  Age: 72 Year
  Sex: Female

DRUGS (8)
  1. GAS-X EXTRA STRENGTH SOFTGELS (NCH) (SIMETHICONE) SOFT GELATIN CAPSULE [Suspect]
     Indication: FLATULENCE
     Dosage: 250 MG, QD, ORAL
     Route: 048
     Dates: start: 20081231
  2. BYETTA [Concomitant]
  3. ASPIRIN [Suspect]
  4. GLUCOPHAGE [Concomitant]
  5. GLUCOTROL [Concomitant]
  6. INSULIN (INSULIN) [Concomitant]
  7. AVALIDE [Concomitant]
  8. FENOFIBRIATE (FENOFIBRATE) [Concomitant]

REACTIONS (2)
  - DIVERTICULITIS [None]
  - FAECES DISCOLOURED [None]
